FAERS Safety Report 7632602-3 (Version None)
Quarter: 2011Q3

REPORT INFORMATION
  Report Type: 
  Country: None (occurrence: None)
  Receive Date: 20110725
  Receipt Date: 20110712
  Transmission Date: 20111222
  Serious: Yes (Other)
  Sender: FDA-Public Use
  Company Number: JP-NAPPMUNDI-MAG-2011-0001488

PATIENT
  Age: 46 Year
  Sex: Male

DRUGS (9)
  1. OXYCODONE HCL [Suspect]
     Dosage: 80 MG, DAILY
     Route: 048
  2. OXYCODONE HCL [Suspect]
     Dosage: 70 MG, DAILY
     Route: 048
  3. OXYCODONE HCL [Suspect]
     Dosage: 60 MG, DAILY
     Route: 048
  4. OXYCODONE HCL [Suspect]
     Dosage: 60 MG, DAILY
     Route: 048
  5. OXYCODONE HCL [Suspect]
     Dosage: 15 MG, DAILY
     Route: 048
  6. OXYCODONE HCL [Suspect]
     Indication: PRODUCT USED FOR UNKNOWN INDICATION
     Dosage: 40 MG, DAILY
     Route: 048
  7. OXYCODONE HCL [Suspect]
     Dosage: 40 MG, DAILY
     Route: 048
  8. OXYCODONE HCL [Suspect]
     Indication: PRODUCT USED FOR UNKNOWN INDICATION
     Dosage: 10 MG, DAILY
     Route: 048
  9. OXYCODONE HCL [Suspect]
     Dosage: 7.5 MG, DAILY
     Route: 048

REACTIONS (1)
  - DELIRIUM [None]
